FAERS Safety Report 23305374 (Version 1)
Quarter: 2023Q4

REPORT INFORMATION
  Report Type: Spontaneous
  Country: FR (occurrence: FR)
  Receive Date: 20231218
  Receipt Date: 20231218
  Transmission Date: 20240110
  Serious: Yes (Death, Other)
  Sender: FDA-Public Use
  Company Number: FR-AFSSAPS-NC20211010

PATIENT
  Sex: Female
  Weight: 7 kg

DRUGS (3)
  1. ACETAMINOPHEN [Suspect]
     Active Substance: ACETAMINOPHEN
     Indication: Immunisation
     Dosage: 100 MILLIGRAM, 1 TOTAL
     Route: 054
     Dates: start: 20210308, end: 20210308
  2. PREVENAR [Suspect]
     Active Substance: PNEUMOCOCCAL 7-VALENT CONJUGATE VACCINE (DIPHTHERIA CRM197 PROTEIN)
     Indication: Immunisation
     Dosage: 1 DOSAGE FORM, 1 TOTAL
     Route: 030
     Dates: start: 20210308, end: 20210308
  3. INFANRIX [Suspect]
     Active Substance: DIPHTHERIA AND TETANUS TOXOIDS AND ACELLULAR PERTUSSIS VACCINE ADSORBED PF
     Indication: Immunisation
     Dosage: 1 DOSAGE FORM, 1 TOTAL
     Route: 030
     Dates: start: 20210308, end: 20210308

REACTIONS (1)
  - Sudden infant death syndrome [Fatal]

NARRATIVE: CASE EVENT DATE: 20210309
